FAERS Safety Report 25762292 (Version 1)
Quarter: 2025Q3

REPORT INFORMATION
  Report Type: Spontaneous
  Country: CN (occurrence: CN)
  Receive Date: 20250904
  Receipt Date: 20250904
  Transmission Date: 20251021
  Serious: Yes (Hospitalization, Other)
  Sender: PFIZER
  Company Number: CN-PFIZER INC-PV202500106252

PATIENT
  Age: 3 Year
  Sex: Female
  Weight: 11.5 kg

DRUGS (2)
  1. CYTARABINE [Suspect]
     Active Substance: CYTARABINE
     Indication: Acute lymphocytic leukaemia
     Dosage: 0.027 G, 2X/DAY
     Route: 058
     Dates: start: 20250804, end: 20250810
  2. CYCLOPHOSPHAMIDE [Suspect]
     Active Substance: CYCLOPHOSPHAMIDE
     Indication: Acute lymphocytic leukaemia
     Dosage: 0.53 G, 1X/DAY
     Route: 041
     Dates: start: 20250804, end: 20250804

REACTIONS (4)
  - Myelosuppression [Recovering/Resolving]
  - Cough [Unknown]
  - Pyrexia [Unknown]
  - C-reactive protein increased [Recovered/Resolved]

NARRATIVE: CASE EVENT DATE: 20250812
